FAERS Safety Report 4722566-4 (Version None)
Quarter: 2005Q3

REPORT INFORMATION
  Report Type: 
  Country: None (occurrence: None)
  Receive Date: 20050720
  Receipt Date: 20050708
  Transmission Date: 20060218
  Serious: Yes (Other)
  Sender: FDA-Public Use
  Company Number: 2005099889

PATIENT
  Age: 52 Year
  Sex: Female
  Weight: 92.9874 kg

DRUGS (1)
  1. BENADRYL [Suspect]
     Indication: NASAL CONGESTION
     Dosage: 4 TSP ONCE ORAL
     Route: 048
     Dates: start: 20050601, end: 20050601

REACTIONS (6)
  - DYSPNOEA [None]
  - FEAR [None]
  - FLUID INTAKE REDUCED [None]
  - HYPOAESTHESIA ORAL [None]
  - INSOMNIA [None]
  - ORAL INTAKE REDUCED [None]
